FAERS Safety Report 4690699-7 (Version None)
Quarter: 2005Q2

REPORT INFORMATION
  Report Type: 
  Country: None (occurrence: None)
  Receive Date: 20050615
  Receipt Date: 20040707
  Transmission Date: 20051028
  Serious: Yes (Hospitalization)
  Sender: FDA-Public Use
  Company Number: JP-ABBOTT-04P-087-0266464-00

PATIENT
  Sex: Male

DRUGS (9)
  1. NORVIR [Suspect]
     Indication: HIV INFECTION
     Route: 048
     Dates: start: 20040209
  2. NORVIR [Suspect]
  3. LAMIVUDINE [Suspect]
     Indication: HIV INFECTION
     Route: 048
     Dates: start: 20040127
  4. STAVUDINE [Suspect]
     Indication: HIV INFECTION
     Route: 048
     Dates: start: 20040127
  5. EFAVIRENZ [Suspect]
     Indication: HIV INFECTION
     Route: 048
     Dates: start: 20040127, end: 20040208
  6. SAQUINAVIR [Suspect]
     Indication: HIV INFECTION
     Route: 048
     Dates: start: 20040209
  7. FLUCONAZOLE [Concomitant]
     Indication: CANDIDIASIS
     Route: 048
     Dates: start: 20040108
  8. AZITHROMYCIN [Concomitant]
     Indication: ANTIBACTERIAL PROPHYLAXIS
     Route: 048
     Dates: start: 20040108, end: 20040205
  9. GANCICLOVIR [Concomitant]
     Indication: CYTOMEGALOVIRUS VIRAEMIA
     Route: 048
     Dates: start: 20040325, end: 20041024

REACTIONS (4)
  - ATYPICAL MYCOBACTERIAL INFECTION [None]
  - IMMUNE RECONSTITUTION SYNDROME [None]
  - MALAISE [None]
  - PYREXIA [None]
